FAERS Safety Report 5807721-4 (Version None)
Quarter: 2008Q3

REPORT INFORMATION
  Report Type: 
  Country: None (occurrence: None)
  Receive Date: 20080711
  Receipt Date: 20080701
  Transmission Date: 20090109
  Serious: Yes (Life-Threatening)
  Sender: FDA-Public Use
  Company Number: US-KINGPHARMUSA00001-K200800759

PATIENT

DRUGS (13)
  1. ALTACE [Suspect]
     Indication: LEFT VENTRICULAR HYPERTROPHY
     Dosage: 2.5 MG, QD
     Route: 048
     Dates: start: 20070918, end: 20071001
  2. ALTACE [Suspect]
     Dosage: 5 MG, QD
     Route: 048
     Dates: start: 20071021
  3. ALTACE [Suspect]
     Dosage: 10 MG, QD
     Route: 048
     Dates: start: 20080115, end: 20080201
  4. FUROSEMIDE [Suspect]
     Dosage: 20 MG, QD
     Dates: start: 20071120
  5. FUROSEMIDE [Suspect]
     Dosage: 40 MG, QD
     Route: 048
  6. DIHYDROCODEINE [Concomitant]
     Indication: PAIN
     Dosage: 240 MG, UNK
     Route: 048
     Dates: start: 19910101
  7. IBUPROFEN [Concomitant]
     Indication: PAIN
     Dosage: 1600 MG, QD
     Route: 048
     Dates: start: 20060101
  8. LEVOTHYROXINE SODIUM [Concomitant]
     Indication: HYPOTHYROIDISM
     Dosage: 100 UG, UNK
     Route: 048
     Dates: start: 20050101
  9. OMEPRAZOLE [Concomitant]
     Indication: PROPHYLAXIS AGAINST GASTROINTESTINAL ULCER
     Dosage: 20 MG, UNK
     Route: 048
     Dates: start: 20060101
  10. TIBOLONE [Concomitant]
     Dosage: 2.5 MG, QD
     Route: 048
     Dates: start: 19970101
  11. TIBOLONE [Concomitant]
     Route: 048
     Dates: start: 20071021
  12. TIBOLONE [Concomitant]
     Route: 048
     Dates: start: 20071021
  13. TIBOLONE [Concomitant]
     Route: 048
     Dates: start: 20071021

REACTIONS (14)
  - ASTHMA LATE ONSET [None]
  - BRONCHOSPASM [None]
  - CHRONIC OBSTRUCTIVE PULMONARY DISEASE [None]
  - CORONARY ARTERY DISEASE [None]
  - COUGH [None]
  - DYSPNOEA [None]
  - DYSPNOEA PAROXYSMAL NOCTURNAL [None]
  - FEELING ABNORMAL [None]
  - GLOBAL AMNESIA [None]
  - HYPOTENSION [None]
  - LEFT VENTRICULAR DYSFUNCTION [None]
  - LOSS OF CONSCIOUSNESS [None]
  - RENAL IMPAIRMENT [None]
  - WHEEZING [None]
